FAERS Safety Report 10437762 (Version 2)
Quarter: 2014Q3

REPORT INFORMATION
  Report Type: Spontaneous
  Country: US (occurrence: US)
  Receive Date: 20140908
  Receipt Date: 20140908
  Transmission Date: 20150326
  Serious: No
  Sender: FDA-Public Use
  Company Number: US-BRISTOL-MYERS SQUIBB COMPANY-19784222

PATIENT
  Age: 40 Year
  Sex: Male

DRUGS (7)
  1. METFORMIN [Concomitant]
     Active Substance: METFORMIN HYDROCHLORIDE
  2. WELLBUTRIN [Suspect]
     Active Substance: BUPROPION HYDROCHLORIDE
  3. ABILIFY [Suspect]
     Active Substance: ARIPIPRAZOLE
     Indication: SCHIZOAFFECTIVE DISORDER
     Dosage: 10MG: 3/2016?BROKEN THE 15MG,10MG,AND NOW THE 5MG TABLETS IN HALF?NOW 2.5MG
     Route: 048
     Dates: start: 201303, end: 201311
  4. NAVANE [Concomitant]
     Active Substance: THIOTHIXENE
  5. ABILIFY [Suspect]
     Active Substance: ARIPIPRAZOLE
     Indication: AFFECTIVE DISORDER
     Dosage: 10MG: 3/2016?BROKEN THE 15MG,10MG,AND NOW THE 5MG TABLETS IN HALF?NOW 2.5MG
     Route: 048
     Dates: start: 201303, end: 201311
  6. COGENTIN [Concomitant]
     Active Substance: BENZTROPINE MESYLATE
  7. JANUVIA [Concomitant]
     Active Substance: SITAGLIPTIN PHOSPHATE

REACTIONS (2)
  - Hypersensitivity [Unknown]
  - Wrong technique in drug usage process [Unknown]

NARRATIVE: CASE EVENT DATE: 201309
